FAERS Safety Report 10133739 (Version 9)
Quarter: 2020Q3

REPORT INFORMATION
  Report Type: Report from Study
  Country: US (occurrence: US)
  Receive Date: 20140428
  Receipt Date: 20200818
  Transmission Date: 20201102
  Serious: Yes (Hospitalization, Disabling, Other)
  Sender: FDA-Public Use
  Company Number: US-SA-2014SA050658

PATIENT
  Sex: Male

DRUGS (4)
  1. TERIFLUNOMIDE. [Suspect]
     Active Substance: TERIFLUNOMIDE
     Dosage: 14 MG,QD
     Route: 048
     Dates: start: 20130121, end: 201610
  2. NEURONTIN [Concomitant]
     Active Substance: GABAPENTIN
     Dosage: 300 MG,BID
     Route: 065
  3. TERIFLUNOMIDE. [Suspect]
     Active Substance: TERIFLUNOMIDE
     Dosage: 14 MG,QD
     Route: 048
     Dates: start: 201610, end: 201707
  4. TERIFLUNOMIDE. [Suspect]
     Active Substance: TERIFLUNOMIDE
     Indication: MULTIPLE SCLEROSIS
     Dosage: 14 MG,QD
     Route: 048
     Dates: start: 20121227

REACTIONS (39)
  - Spinal disorder [Not Recovered/Not Resolved]
  - Neuralgia [Not Recovered/Not Resolved]
  - Burning sensation [Not Recovered/Not Resolved]
  - Nephrolithiasis [Unknown]
  - Monoplegia [Recovering/Resolving]
  - Spinal fusion surgery [Not Recovered/Not Resolved]
  - Balance disorder [Recovering/Resolving]
  - Hypokinesia [Recovering/Resolving]
  - Housebound [Not Recovered/Not Resolved]
  - Limb injury [Not Recovered/Not Resolved]
  - Dysstasia [Not Recovered/Not Resolved]
  - Secondary progressive multiple sclerosis [Unknown]
  - Incontinence [Recovering/Resolving]
  - Paraesthesia [Not Recovered/Not Resolved]
  - Gait disturbance [Not Recovered/Not Resolved]
  - Multiple sclerosis relapse [Recovering/Resolving]
  - Speech disorder [Recovering/Resolving]
  - Mobility decreased [Not Recovered/Not Resolved]
  - Walking aid user [Unknown]
  - Back disorder [Not Recovered/Not Resolved]
  - Fluid retention [Recovering/Resolving]
  - Limb discomfort [Recovering/Resolving]
  - Tremor [Not Recovered/Not Resolved]
  - Hemiplegia [Recovered/Resolved]
  - Dysarthria [Not Recovered/Not Resolved]
  - Condition aggravated [Not Recovered/Not Resolved]
  - Memory impairment [Not Recovered/Not Resolved]
  - Asthenia [Not Recovered/Not Resolved]
  - Paraplegia [Recovering/Resolving]
  - Nerve compression [Not Recovered/Not Resolved]
  - Product use issue [Unknown]
  - Off label use [Unknown]
  - Intervertebral disc protrusion [Not Recovered/Not Resolved]
  - Gait disturbance [Recovering/Resolving]
  - Multiple sclerosis [Not Recovered/Not Resolved]
  - Temperature intolerance [Not Recovered/Not Resolved]
  - Fall [Recovered/Resolved]
  - Back pain [Not Recovered/Not Resolved]
  - Dislocation of vertebra [Not Recovered/Not Resolved]

NARRATIVE: CASE EVENT DATE: 2014
